FAERS Safety Report 9438875 (Version 3)
Quarter: 2013Q3

REPORT INFORMATION
  Report Type: Report from Study
  Country: US (occurrence: US)
  Receive Date: 20130802
  Receipt Date: 20130827
  Transmission Date: 20140515
  Serious: Yes (Other)
  Sender: FDA-Public Use
  Company Number: US-GILEAD-2013-0073783

PATIENT
  Age: 34 Year
  Sex: Female
  Weight: 101.13 kg

DRUGS (20)
  1. EMTRICITABINE/RILPIVIRINE/TENOFOVIR DF [Suspect]
     Indication: HIV INFECTION
     Dosage: 1 DF, QD
     Route: 048
  2. PRENATAL VITAMINS                  /02014401/ [Concomitant]
     Indication: SUPPLEMENTATION THERAPY
     Dosage: 1 DF, QD
     Route: 048
     Dates: start: 20130306
  3. IRON [Concomitant]
     Indication: SUPPLEMENTATION THERAPY
     Dosage: 1 DF, QD
     Route: 048
     Dates: start: 20130306
  4. PROVENTIL HFA                      /00139501/ [Concomitant]
     Indication: DYSPNOEA
     Dosage: 108 ?G, PRN
     Route: 055
     Dates: start: 20130306
  5. DOCUSATE SODIUM [Concomitant]
     Indication: CONSTIPATION
     Dosage: 100 MG, BID
     Route: 048
     Dates: start: 20130330
  6. GUAIFENESIN [Concomitant]
     Dosage: 200 MG, PRN
     Route: 048
     Dates: start: 20130501, end: 20130505
  7. NICOTINE [Concomitant]
     Indication: SMOKING CESSATION THERAPY
     Dosage: 14 MG, QD
     Route: 062
     Dates: start: 20130718
  8. BOOSTRIX [Concomitant]
     Indication: IMMUNISATION
     Dosage: 0.5 ML, ONCE
     Route: 030
     Dates: start: 20130720, end: 20130720
  9. OXYTOCIN [Concomitant]
     Indication: LABOUR INDUCTION
     Dosage: 2 ML, UNK
     Route: 042
     Dates: start: 20130718, end: 20130720
  10. OXYTOCIN [Concomitant]
     Dosage: UNK UNK, ONCE
     Route: 042
     Dates: start: 20130720, end: 20130720
  11. PLASMA-LYTE A [Concomitant]
     Indication: FLUID REPLACEMENT
     Dosage: 1000 ML, QID
     Route: 042
     Dates: start: 20130718, end: 20130721
  12. ACETAMINOPHEN [Concomitant]
     Indication: PYREXIA
     Dosage: 650 MG, PRN
     Route: 048
     Dates: start: 20130720, end: 20130721
  13. IBUPROFEN [Concomitant]
     Indication: LABOUR PAIN
     Dosage: 600 MG, PRN
     Route: 048
     Dates: start: 20130720, end: 20130721
  14. POLYETHYLENE GLYCOL [Concomitant]
     Indication: CONSTIPATION
     Dosage: 17 G, QD
     Route: 048
     Dates: start: 20130720, end: 20130721
  15. SIMETHICONE [Concomitant]
     Indication: FLATULENCE
     Dosage: 80 MG, PRN
     Route: 048
     Dates: start: 20130720, end: 20130721
  16. ZOLPIDEM [Concomitant]
     Indication: SOMNOLENCE
     Dosage: 5 MG, QHS
     Route: 048
     Dates: start: 20130720, end: 20130720
  17. KETOROLAC [Concomitant]
     Indication: PAIN
     Dosage: 30 MG, ONCE
     Route: 042
     Dates: start: 20130720, end: 20130720
  18. MORPHINE [Concomitant]
     Indication: PAIN
     Dosage: 50 ?G, QD
     Route: 042
     Dates: start: 20130720, end: 20130720
  19. PERCOCET                           /00446701/ [Concomitant]
     Indication: PAIN
     Dosage: 1 DF, PRN
     Route: 048
     Dates: start: 20130720, end: 20130721
  20. PERCOCET                           /00446701/ [Concomitant]
     Dosage: 2 DF, PRN
     Route: 048
     Dates: start: 20130720, end: 20130721

REACTIONS (2)
  - Puerperal pyrexia [Unknown]
  - Pregnancy [Recovered/Resolved]
